FAERS Safety Report 23932493 (Version 1)
Quarter: 2024Q2

REPORT INFORMATION
  Report Type: Spontaneous
  Country: FR (occurrence: None)
  Receive Date: 20240603
  Receipt Date: 20240603
  Transmission Date: 20240715
  Serious: Yes (Life-Threatening, Hospitalization)
  Sender: FDA-Public Use
  Company Number: FR-Orion Corporation ORION PHARMA-TREX2024-0127

PATIENT
  Age: 55 Year
  Sex: Male
  Weight: 61.6 kg

DRUGS (5)
  1. METHOTREXATE SODIUM [Suspect]
     Active Substance: METHOTREXATE SODIUM
     Indication: Rheumatoid arthritis
     Dates: end: 20240201
  2. FOLIC ACID [Suspect]
     Active Substance: FOLIC ACID
     Indication: Rheumatoid arthritis
  3. PREDNISONE [Suspect]
     Active Substance: PREDNISONE
     Indication: Rheumatoid arthritis
  4. ORENCIA [Suspect]
     Active Substance: ABATACEPT
     Indication: Rheumatoid arthritis
     Dosage: STRENGTH 125 MG
     Dates: end: 20240201
  5. ROXADUSTAT [Suspect]
     Active Substance: ROXADUSTAT
     Indication: Anaemia
     Dosage: STRENGTH 20 MG
     Dates: end: 20240131

REACTIONS (10)
  - Unadjusted dose administered [Unknown]
  - Pancytopenia [Recovered/Resolved]
  - Gastrointestinal haemorrhage [Recovered/Resolved]
  - Bronchopulmonary aspergillosis [Recovering/Resolving]
  - Influenza [Recovered/Resolved]
  - Toxicity to various agents [Unknown]
  - General physical health deterioration [Unknown]
  - Diarrhoea [Unknown]
  - Oral disorder [Unknown]
  - Acute kidney injury [Unknown]

NARRATIVE: CASE EVENT DATE: 20240101
